FAERS Safety Report 9758527 (Version 1)
Quarter: 2013Q4

REPORT INFORMATION
  Report Type: Spontaneous
  Country: US (occurrence: None)
  Receive Date: 20131216
  Receipt Date: 20131216
  Transmission Date: 20140711
  Serious: No
  Sender: FDA-Public Use
  Company Number: CABO-13002560

PATIENT
  Age: 70 Year
  Sex: Male

DRUGS (2)
  1. COMETRIQ [Suspect]
     Indication: BONE CANCER
     Dosage: 140 MG, QD, ORAL?100 MG. QD. ORAL?40 MG. QD, ORAL?20 MG. BID, ORAL?40 MG, QD, ORAL
  2. COMETRIQ [Suspect]
     Indication: METASTASES TO BONE MARROW
     Dosage: 140 MG, QD, ORAL?100 MG. QD. ORAL?40 MG. QD, ORAL?20 MG. BID, ORAL?40 MG, QD, ORAL

REACTIONS (6)
  - Non-cardiac chest pain [None]
  - Rhinorrhoea [None]
  - Nausea [None]
  - Vomiting [None]
  - Fatigue [None]
  - Headache [None]
